FAERS Safety Report 20245238 (Version 5)
Quarter: 2022Q2

REPORT INFORMATION
  Report Type: Spontaneous
  Country: US (occurrence: US)
  Receive Date: 20211229
  Receipt Date: 20220615
  Transmission Date: 20220720
  Serious: Yes (Hospitalization)
  Sender: FDA-Public Use
  Company Number: US-AVEO ONCOLOGY-2021-AVEO-US003638

PATIENT

DRUGS (34)
  1. FOTIVDA [Suspect]
     Active Substance: TIVOZANIB HYDROCHLORIDE
     Indication: Renal cell carcinoma
     Dosage: 1.34 MG, DAILY, 1 CAP FOR 21 DAYS ON/7 DAYS OFF
     Route: 048
     Dates: start: 202110, end: 202204
  2. TYLENOL [Concomitant]
     Active Substance: ACETAMINOPHEN
     Dosage: 650 MG, Q4HR
     Route: 048
     Dates: start: 20210629
  3. ASPIRIN [Concomitant]
     Active Substance: ASPIRIN
  4. VITAMIN B COMPLEX [Concomitant]
     Active Substance: CYANOCOBALAMIN\DEXPANTHENOL\NIACINAMIDE\PYRIDOXINE HYDROCHLORIDE\RIBOFLAVIN 5^-PHOSPHATE SODIUM\THIA
     Dosage: UNK
     Dates: start: 20170623
  5. BYSTOLIC [Concomitant]
     Active Substance: NEBIVOLOL HYDROCHLORIDE
  6. CLONIDINE [Concomitant]
     Active Substance: CLONIDINE
  7. CLOTRIMAZOLE AF [Concomitant]
     Dosage: 1 %, BID PRN
     Route: 061
  8. DEXAMETHASONE [Concomitant]
     Active Substance: DEXAMETHASONE
  9. BENADRYL [Concomitant]
     Active Substance: DIPHENHYDRAMINE HYDROCHLORIDE
     Dosage: 50 MG, SINGLE 1 HOUR PRIOR TO SCAN
     Route: 048
  10. HUMALOG [Concomitant]
     Active Substance: INSULIN LISPRO
  11. HYDRALAZINE [Concomitant]
     Active Substance: HYDRALAZINE HYDROCHLORIDE
  12. LACTULOSE [Concomitant]
     Active Substance: LACTULOSE
     Dosage: 10 G, BID
     Route: 048
     Dates: start: 20200218
  13. LASIX [Concomitant]
     Active Substance: FUROSEMIDE
     Dosage: 80 MG 4 TIMES A WEEK ON NON DIALYSIS DAYS
     Route: 048
  14. LATANOPROST [Concomitant]
     Active Substance: LATANOPROST
  15. MONISTAT [Concomitant]
     Active Substance: MICONAZOLE NITRATE
  16. MOXONIDINE [Concomitant]
     Active Substance: MOXONIDINE
  17. NIFEDIPINE [Concomitant]
     Active Substance: NIFEDIPINE
  18. NORCO [Concomitant]
     Active Substance: ACETAMINOPHEN\HYDROCODONE BITARTRATE
  19. NYSTATIN [Concomitant]
     Active Substance: NYSTATIN
  20. OMEPRAZOLE [Concomitant]
     Active Substance: OMEPRAZOLE
     Dosage: 40 MG, DAILY
     Route: 048
     Dates: start: 20201020
  21. TERBINAFINE [Concomitant]
     Active Substance: TERBINAFINE
  22. VALSARTAN [Concomitant]
     Active Substance: VALSARTAN
  23. VELTASSA [Concomitant]
     Active Substance: PATIROMER
     Dosage: 16.8 G, DAILY
     Route: 048
     Dates: start: 20200921
  24. XANAX [Concomitant]
     Active Substance: ALPRAZOLAM
     Dosage: UNK
     Dates: start: 20170616
  25. ZOFRAN [Concomitant]
     Active Substance: ONDANSETRON HYDROCHLORIDE
     Dosage: 4 MG, Q8HR PRN
     Route: 048
     Dates: start: 20200908
  26. ZYRTEC [Concomitant]
     Active Substance: CETIRIZINE HYDROCHLORIDE
  27. HYDROCORTISONE [Concomitant]
     Active Substance: HYDROCORTISONE
  28. LEVOTHYROXINE [Concomitant]
     Active Substance: LEVOTHYROXINE
     Dosage: 200 UG
     Dates: start: 20211129
  29. ALPRAZOLAM [Concomitant]
     Active Substance: ALPRAZOLAM
  30. NEPHRO-VITE RX [Concomitant]
  31. CALCIUM ACETATE [Concomitant]
     Active Substance: CALCIUM ACETATE
     Dosage: 667 MG, TID ALSO TAKES 1 CAPSULE WITH SNACKS
     Route: 048
     Dates: start: 20210422
  32. TUMS [Concomitant]
     Active Substance: CALCIUM CARBONATE
     Dosage: 1000 MG, TID PRN
     Route: 048
     Dates: start: 20210629
  33. HYDROCODONE [Concomitant]
     Active Substance: HYDROCODONE
  34. FUROSEMIDE [Concomitant]
     Active Substance: FUROSEMIDE

REACTIONS (7)
  - Back pain [Unknown]
  - Blood pressure increased [Unknown]
  - Hepatic enzyme increased [Unknown]
  - Pleural effusion [Unknown]
  - Product dose omission issue [Unknown]
  - Dry skin [Unknown]
  - Pruritus [Unknown]
